FAERS Safety Report 15136999 (Version 1)
Quarter: 2018Q3

REPORT INFORMATION
  Report Type: Spontaneous
  Country: US (occurrence: US)
  Receive Date: 20180712
  Receipt Date: 20180712
  Transmission Date: 20181010
  Serious: No
  Sender: FDA-Public Use
  Company Number: US-FOUNDATIONCONSUMERHC-2018-US-008200

PATIENT
  Age: 16 Year
  Sex: Female
  Weight: 81.65 kg

DRUGS (3)
  1. PLAN B ONE?STEP [Suspect]
     Active Substance: LEVONORGESTREL
     Indication: POST COITAL CONTRACEPTION
     Dosage: 1.5 MG
     Route: 048
     Dates: start: 20180506, end: 20180506
  2. ACCUTANE [Concomitant]
     Active Substance: ISOTRETINOIN
     Dosage: 40 MG/QD
  3. ACCUTANE 40MG [Concomitant]
     Dosage: 1 ONCE DAILY

REACTIONS (2)
  - Vaginal haemorrhage [Not Recovered/Not Resolved]
  - Dysmenorrhoea [Not Recovered/Not Resolved]

NARRATIVE: CASE EVENT DATE: 20180515
